FAERS Safety Report 8963304 (Version 2)
Quarter: 2014Q2

REPORT INFORMATION
  Report Type: Report from Study
  Country: IL (occurrence: IL)
  Receive Date: 20121214
  Receipt Date: 20131018
  Transmission Date: 20141212
  Serious: Yes (Life-Threatening)
  Sender: FDA-Public Use
  Company Number: IL-PFIZER INC-2012313866

PATIENT
  Age: 54 Year
  Sex: Female

DRUGS (31)
  1. SOLU-MEDROL [Suspect]
     Indication: PROPHYLAXIS AGAINST TRANSPLANT REJECTION
     Dosage: 125 MG, 1X/DAY
     Route: 042
     Dates: start: 20031210, end: 20031211
  2. SOLU-MEDROL [Suspect]
     Dosage: 500 MG, 1X/DAY
     Route: 042
     Dates: start: 20031214, end: 20031219
  3. PREDNISONE [Suspect]
     Indication: PROPHYLAXIS AGAINST TRANSPLANT REJECTION
     Dosage: 20 MG, 1X/DAY
     Route: 048
     Dates: start: 20031211
  4. MYCOPHENOLATE MOFETIL [Suspect]
     Indication: PROPHYLAXIS AGAINST TRANSPLANT REJECTION
     Dosage: 1 G, 2X/DAY
     Route: 048
     Dates: start: 20031209, end: 20031223
  5. MYCOPHENOLATE MOFETIL [Suspect]
     Dosage: 500 MG, 2X/DAY
     Route: 048
     Dates: start: 20031226
  6. MYCOPHENOLATE MOFETIL [Suspect]
     Dosage: 750 MG, 2X/DAY
     Route: 048
     Dates: start: 20040401
  7. DACLIZUMAB [Suspect]
     Indication: PROPHYLAXIS AGAINST TRANSPLANT REJECTION
     Dosage: 140 MG, BASELINE VISIT
     Route: 042
     Dates: start: 20031209
  8. CICLOSPORIN [Suspect]
     Indication: PROPHYLAXIS AGAINST TRANSPLANT REJECTION
     Dosage: 100 MG, 1X/DAY
     Route: 048
     Dates: start: 20031209, end: 20040109
  9. CICLOSPORIN [Suspect]
     Dosage: 75 MG, 2X/DAY
     Route: 048
     Dates: start: 20040120, end: 20040201
  10. CICLOSPORIN [Suspect]
     Dosage: 75 MG, 2X/DAY
     Route: 048
     Dates: start: 20040202
  11. THYMOGLOBULINE [Concomitant]
     Route: 042
  12. HEPARIN [Concomitant]
     Dosage: UNK
     Route: 058
     Dates: start: 20031210
  13. INSULIN [Concomitant]
     Dosage: UNK
     Route: 058
     Dates: start: 20031222
  14. DOXAZOSIN MESILATE [Concomitant]
     Indication: BENIGN PROSTATIC HYPERPLASIA
     Dosage: 8 MG, 2X/DAY
     Route: 048
     Dates: start: 20031212
  15. DOXAZOSIN MESILATE [Concomitant]
     Dosage: 4 MG, 1X/DAY
     Route: 048
     Dates: start: 20040608
  16. EPOETIN BETA [Concomitant]
     Dosage: 10000 IU, UNK 3 TIMES A WEEK
     Route: 058
     Dates: start: 20031223
  17. NIFEDIPINE [Concomitant]
     Dosage: 10 MG, 1X/DAY
     Route: 048
     Dates: start: 20031216, end: 20040608
  18. SIMVASTATIN [Concomitant]
     Dosage: 80 MG, 1X/DAY
     Route: 048
     Dates: start: 20031217, end: 20040608
  19. VALGANCICLOVIR [Concomitant]
     Dosage: 900 MG, 1X/DAY
     Route: 048
     Dates: start: 20031230, end: 20040608
  20. CLOPIDOGREL [Concomitant]
     Dosage: 7.5 MG, 1X/DAY
     Route: 048
     Dates: start: 20040608
  21. ATENOLOL [Concomitant]
     Dosage: 12.5 MG, 1X/DAY
     Route: 048
     Dates: start: 20031210
  22. ATENOLOL [Concomitant]
     Dosage: 100 MG, 1X/DAY
     Route: 048
     Dates: start: 20041217
  23. ATENOLOL [Concomitant]
     Dosage: 100 MG, 1X/DAY
     Route: 048
     Dates: start: 20041221
  24. ACARBOSE [Concomitant]
     Dosage: 50 MG, 1X/DAY
     Route: 048
     Dates: start: 20041221
  25. ATORVASTATIN CALCIUM [Concomitant]
     Dosage: 40 MG, 1X/DAY
     Route: 048
     Dates: start: 20040608
  26. ATORVASTATIN CALCIUM [Concomitant]
     Dosage: 60 MG, 1X/DAY
     Route: 048
     Dates: start: 20041221
  27. AUGMENTIN [Concomitant]
     Dosage: 875 MG, 2X/DAY
     Route: 048
     Dates: start: 20031222
  28. CO-TRIMOXAZOLE [Concomitant]
     Dosage: 480 MG, UNK 3 TIMES A WEEK
     Route: 048
     Dates: start: 20040708
  29. FUROSEMIDE [Concomitant]
     Dosage: 40 MG, 1X/DAY
     Dates: start: 20040608
  30. GANCICLOVIR [Concomitant]
     Dosage: 100 MG, 1X/DAY
     Route: 042
     Dates: start: 20031222, end: 20040101
  31. ELTROXIN [Concomitant]
     Dosage: 100 MG, UNK
     Route: 048
     Dates: start: 20031210

REACTIONS (1)
  - Endometrial cancer metastatic [Not Recovered/Not Resolved]
